FAERS Safety Report 12008373 (Version 1)
Quarter: 2016Q1

REPORT INFORMATION
  Report Type: Report from Study
  Country: US (occurrence: US)
  Receive Date: 20160205
  Receipt Date: 20160205
  Transmission Date: 20160526
  Serious: No
  Sender: FDA-Public Use
  Company Number: US-ABBVIE-15K-163-1442821-00

PATIENT
  Sex: Female
  Weight: 81.72 kg

DRUGS (14)
  1. CYCLOBENZAPRINE [Concomitant]
     Active Substance: CYCLOBENZAPRINE
     Indication: PRODUCT USED FOR UNKNOWN INDICATION
  2. HUMIRA [Suspect]
     Active Substance: ADALIMUMAB
     Route: 065
     Dates: start: 2014, end: 2015
  3. IMIQUIMOD. [Concomitant]
     Active Substance: IMIQUIMOD
     Indication: ACTINIC KERATOSIS
  4. HUMIRA [Suspect]
     Active Substance: ADALIMUMAB
     Route: 065
     Dates: start: 2015
  5. NORTRIPTYLINE [Concomitant]
     Active Substance: NORTRIPTYLINE
     Indication: PAIN IN EXTREMITY
  6. VITAMIN D [Concomitant]
     Active Substance: CHOLECALCIFEROL
     Indication: PRODUCT USED FOR UNKNOWN INDICATION
  7. BIOTIN [Concomitant]
     Active Substance: BIOTIN
     Indication: PRODUCT USED FOR UNKNOWN INDICATION
  8. OMEPRAZOLE. [Concomitant]
     Active Substance: OMEPRAZOLE
     Indication: PRODUCT USED FOR UNKNOWN INDICATION
  9. ESTRACE [Concomitant]
     Active Substance: ESTRADIOL
     Indication: PRODUCT USED FOR UNKNOWN INDICATION
  10. FOLIC ACID. [Concomitant]
     Active Substance: FOLIC ACID
     Indication: PRODUCT USED FOR UNKNOWN INDICATION
  11. CRESTOR [Concomitant]
     Active Substance: ROSUVASTATIN CALCIUM
     Indication: BLOOD CHOLESTEROL
  12. METHOTREXATE [Concomitant]
     Active Substance: METHOTREXATE
     Indication: PRODUCT USED FOR UNKNOWN INDICATION
  13. HUMIRA [Suspect]
     Active Substance: ADALIMUMAB
     Indication: RHEUMATOID ARTHRITIS
     Route: 065
     Dates: start: 2014, end: 2014
  14. MELOXICAM. [Concomitant]
     Active Substance: MELOXICAM
     Indication: PAIN

REACTIONS (6)
  - Joint swelling [Recovering/Resolving]
  - Rhinitis [Recovering/Resolving]
  - Rhinitis [Recovered/Resolved]
  - Headache [Recovering/Resolving]
  - Muscle spasms [Recovering/Resolving]
  - Arthralgia [Recovering/Resolving]

NARRATIVE: CASE EVENT DATE: 2014
